FAERS Safety Report 12199796 (Version 1)
Quarter: 2016Q1

REPORT INFORMATION
  Report Type: Spontaneous
  Country: US (occurrence: None)
  Receive Date: 20160321
  Receipt Date: 20160321
  Transmission Date: 20160526
  Serious: Yes (Life-Threatening)
  Sender: FDA-Public Use
  Company Number: None

PATIENT
  Age: 57 Year
  Sex: Female
  Weight: 58 kg

DRUGS (1)
  1. CISATRACURIUM ABBVIE [Suspect]
     Active Substance: CISATRACURIUM
     Indication: MECHANICAL VENTILATION
     Route: 040
     Dates: start: 20160310, end: 20160310

REACTIONS (3)
  - Atrioventricular block complete [None]
  - Pulse absent [None]
  - Echocardiogram abnormal [None]

NARRATIVE: CASE EVENT DATE: 20160310
